FAERS Safety Report 7930339-4 (Version None)
Quarter: 2011Q4

REPORT INFORMATION
  Report Type: 
  Country: None (occurrence: None)
  Receive Date: 20111121
  Receipt Date: 20111116
  Transmission Date: 20120403
  Serious: Yes (Death, Other)
  Sender: FDA-Public Use
  Company Number: CH-ELI_LILLY_AND_COMPANY-CH201109004330

PATIENT
  Sex: Male
  Weight: 109 kg

DRUGS (3)
  1. RAMIPRIL [Concomitant]
  2. EFFIENT [Suspect]
     Indication: ACUTE MYOCARDIAL INFARCTION
     Dosage: 60 MG, UNK
     Dates: start: 20110607, end: 20110702
  3. BISOPROLOL FUMARATE [Concomitant]

REACTIONS (3)
  - SUDDEN CARDIAC DEATH [None]
  - TACHYCARDIA [None]
  - ATRIAL FIBRILLATION [None]
